FAERS Safety Report 23680843 (Version 1)
Quarter: 2024Q1

REPORT INFORMATION
  Report Type: Spontaneous
  Country: NL (occurrence: NL)
  Receive Date: 20240328
  Receipt Date: 20240328
  Transmission Date: 20240410
  Serious: Yes (Life-Threatening, Hospitalization, Other)
  Sender: FDA-Public Use
  Company Number: NL-LRB-00957704

PATIENT
  Age: 59 Year
  Sex: Female
  Weight: 81 kg

DRUGS (5)
  1. ATORVASTATIN [Interacting]
     Active Substance: ATORVASTATIN
     Indication: Hypercholesterolaemia
     Dosage: 20 MILLIGRAM, ONCE A DAY
     Route: 065
     Dates: start: 20231030, end: 20240108
  2. BECLOMETHASONE DIPROPIONATE\FORMOTEROL [Concomitant]
     Active Substance: BECLOMETHASONE DIPROPIONATE\FORMOTEROL
     Indication: Product used for unknown indication
     Dosage: 100/6 MICROGRAM/DOSIS
     Route: 065
  3. NITROFURANTOIN [Concomitant]
     Active Substance: NITROFURANTOIN
     Indication: Product used for unknown indication
     Dosage: 100 MILLIGRAM
     Route: 065
  4. NEXIUM [Concomitant]
     Active Substance: ESOMEPRAZOLE MAGNESIUM
     Indication: Product used for unknown indication
     Dosage: 20 MILLIGRAM
     Route: 065
  5. TACAL D3 [Concomitant]
     Indication: Product used for unknown indication
     Dosage: 1.25 GRAM/800 UNITS
     Route: 065

REACTIONS (5)
  - Hepatitis [Recovering/Resolving]
  - Polymyositis [Recovering/Resolving]
  - Rhabdomyolysis [Recovering/Resolving]
  - Necrotising myositis [Recovering/Resolving]
  - Labelled drug-food interaction issue [Recovering/Resolving]
